FAERS Safety Report 8497819-7 (Version None)
Quarter: 2012Q3

REPORT INFORMATION
  Report Type: 
  Country: None (occurrence: None)
  Receive Date: 20120709
  Receipt Date: 20120608
  Transmission Date: 20120928
  Serious: Yes (Other)
  Sender: FDA-Public Use
  Company Number: US-AMGEN-USASP2012035967

PATIENT
  Age: 62 Year
  Sex: Female

DRUGS (2)
  1. TREXALL [Concomitant]
     Dosage: 1 MG, UNK
  2. ENBREL [Suspect]
     Indication: RHEUMATOID ARTHRITIS
     Dosage: 50 MG, QWK
     Dates: start: 20060108

REACTIONS (13)
  - BLISTER [None]
  - INJECTION SITE SCAB [None]
  - SLEEP APNOEA SYNDROME [None]
  - INSOMNIA [None]
  - BONE PAIN [None]
  - FATIGUE [None]
  - MOBILITY DECREASED [None]
  - GRIP STRENGTH DECREASED [None]
  - DRUG HYPERSENSITIVITY [None]
  - INTERVERTEBRAL DISC DEGENERATION [None]
  - THERAPEUTIC RESPONSE DECREASED [None]
  - PAIN [None]
  - INJECTION SITE RASH [None]
